FAERS Safety Report 7096517-4 (Version None)
Quarter: 2010Q4

REPORT INFORMATION
  Report Type: 
  Country: None (occurrence: None)
  Receive Date: 20101111
  Receipt Date: 20101109
  Transmission Date: 20110411
  Serious: Yes (Death)
  Sender: FDA-Public Use
  Company Number: A0883077A

PATIENT
  Age: 40 Year
  Sex: Female

DRUGS (1)
  1. PROMACTA [Suspect]
     Dosage: 75MG PER DAY
     Route: 048
     Dates: end: 20100201

REACTIONS (2)
  - COLON CANCER METASTATIC [None]
  - THROMBOCYTOPENIA [None]
